FAERS Safety Report 8080882-5 (Version None)
Quarter: 2012Q1

REPORT INFORMATION
  Report Type: 
  Country: None (occurrence: None)
  Receive Date: 20120130
  Receipt Date: 20120120
  Transmission Date: 20120608
  Serious: Yes (Other)
  Sender: FDA-Public Use
  Company Number: GB-BAYER-2012-006961

PATIENT
  Age: 67 Year
  Sex: Female

DRUGS (7)
  1. ALTACE [Interacting]
     Indication: MYOCARDIAL INFARCTION
  2. PREGABALIN [Interacting]
     Indication: TRIGEMINAL NEURALGIA
     Dosage: 300 MG, BID
     Dates: start: 20060101
  3. SIMVASTATIN [Interacting]
     Indication: MYOCARDIAL INFARCTION
  4. PLAVIX [Interacting]
     Indication: MYOCARDIAL INFARCTION
  5. BISOPROLOL FUMARATE [Interacting]
     Indication: MYOCARDIAL INFARCTION
  6. ACETYLSALICYLIC ACID SRT [Suspect]
     Indication: MYOCARDIAL INFARCTION
  7. CLOPIDOGREL [Interacting]
     Indication: MYOCARDIAL INFARCTION

REACTIONS (3)
  - TRIGEMINAL NEURALGIA [None]
  - DRUG INTERACTION [None]
  - MYOCARDIAL INFARCTION [None]
